FAERS Safety Report 10419671 (Version 1)
Quarter: 2014Q3

REPORT INFORMATION
  Report Type: Spontaneous
  Country: US (occurrence: None)
  Receive Date: 20140827
  Receipt Date: 20140827
  Transmission Date: 20150326
  Serious: Yes (Other)
  Sender: FDA-Public Use
  Company Number: AUR-APL-2014-08922

PATIENT
  Age: 63 Year
  Sex: Female

DRUGS (11)
  1. ATENOLOL TABLETS (ATENOLOL) TABLET, UNKNOWN [Suspect]
     Active Substance: ATENOLOL
     Indication: PRODUCT USED FOR UNKNOWN INDICATION
  2. ASPIRINE (ACETYLSALICYLIC ACID) [Concomitant]
  3. XANAX [Concomitant]
     Active Substance: ALPRAZOLAM
  4. LISINOPRIL TABLET (LISINOPRIL) TABLET, UNKNOWN [Suspect]
     Active Substance: LISINOPRIL
     Indication: PRODUCT USED FOR UNKNOWN INDICATION
     Route: 048
  5. TYLENOL [Concomitant]
     Active Substance: ACETAMINOPHEN
  6. PANTOPRAZOLE [Concomitant]
     Active Substance: PANTOPRAZOLE SODIUM
  7. CRESTOR [Suspect]
     Active Substance: ROSUVASTATIN CALCIUM
     Indication: LOW DENSITY LIPOPROTEIN
     Dosage: ONCE A DAY
     Route: 048
     Dates: start: 201104
  8. CITALOPRAM [Concomitant]
     Active Substance: CITALOPRAM HYDROBROMIDE
  9. FELODIPINE (FELODIPINE) UNKNOWN [Suspect]
     Active Substance: FELODIPINE
     Indication: PRODUCT USED FOR UNKNOWN INDICATION
     Route: 048
  10. NITRO (GLYCERYL TRINITRATE) [Concomitant]
  11. PLAVIX (CLOPIDOGREL BISULFATE) [Concomitant]

REACTIONS (1)
  - Myocardial infarction [None]
